FAERS Safety Report 6690921-1 (Version None)
Quarter: 2010Q2

REPORT INFORMATION
  Report Type: 
  Country: None (occurrence: None)
  Receive Date: 20100421
  Receipt Date: 20100416
  Transmission Date: 20101027
  Serious: Yes (Death)
  Sender: FDA-Public Use
  Company Number: DE-ROCHE-665064

PATIENT
  Sex: Male
  Weight: 79 kg

DRUGS (8)
  1. BEVACIZUMAB [Suspect]
     Route: 042
     Dates: start: 20090512
  2. OXALIPLATIN [Suspect]
     Route: 042
     Dates: start: 20090512
  3. FLUOROURACIL [Suspect]
     Dosage: 800 MG, IV BOLUS
     Route: 040
     Dates: start: 20090512
  4. FLUOROURACIL [Suspect]
     Route: 042
     Dates: start: 20090312
  5. FOLINIC ACID [Suspect]
     Route: 042
     Dates: start: 20090512
  6. BROMAZEPAM [Concomitant]
     Indication: DRUG USE FOR UNKNOWN INDICATION
  7. GRANISETRON [Concomitant]
     Indication: DRUG USE FOR UNKNOWN INDICATION
     Dosage: UNK
     Dates: start: 20090512, end: 20090101
  8. DEXAMETHASONE [Concomitant]
     Indication: DRUG USE FOR UNKNOWN INDICATION
     Dosage: UNK
     Dates: start: 20090512, end: 20090101

REACTIONS (1)
  - DEATH [None]
